FAERS Safety Report 6765951-1 (Version None)
Quarter: 2010Q2

REPORT INFORMATION
  Report Type: 
  Country: None (occurrence: None)
  Receive Date: 20100611
  Receipt Date: 20100602
  Transmission Date: 20101027
  Serious: Yes (Hospitalization)
  Sender: FDA-Public Use
  Company Number: FR-ASTRAZENECA-2010SE25435

PATIENT
  Age: 25626 Day
  Sex: Female

DRUGS (18)
  1. NEXIUM [Suspect]
     Route: 048
  2. NAVELBINE [Suspect]
     Route: 042
     Dates: start: 20100329, end: 20100426
  3. FLUORURACIL [Suspect]
     Route: 042
     Dates: start: 20100329, end: 20100424
  4. ACTISKENAN [Suspect]
     Route: 048
     Dates: end: 20100505
  5. DEROXAT [Suspect]
     Route: 048
     Dates: end: 20100505
  6. IMOVANE [Suspect]
     Route: 048
     Dates: end: 20100505
  7. ZOPHREN [Suspect]
     Route: 048
     Dates: end: 20100505
  8. PRIMPERAN [Suspect]
     Route: 048
     Dates: end: 20100505
  9. ARIMIDEX [Concomitant]
  10. AROMASIN [Concomitant]
  11. FASLODEX [Concomitant]
  12. TAMOXIFEN [Concomitant]
  13. HORMONTHERAPY [Concomitant]
  14. SPASFON [Concomitant]
  15. LEXOMIL [Concomitant]
  16. LOVENOX [Concomitant]
  17. MEDROL [Concomitant]
  18. FORLAX [Concomitant]

REACTIONS (6)
  - INFLAMMATION [None]
  - INTERSTITIAL LUNG DISEASE [None]
  - NEUTROPENIA [None]
  - RESPIRATORY DISTRESS [None]
  - SHOCK [None]
  - URINARY TRACT INFECTION [None]
